FAERS Safety Report 5646931-6 (Version None)
Quarter: 2008Q1

REPORT INFORMATION
  Report Type: 
  Country: None (occurrence: None)
  Receive Date: 20080228
  Receipt Date: 20080212
  Transmission Date: 20080703
  Serious: Yes (Hospitalization)
  Sender: FDA-Public Use
  Company Number: 2008EU000323

PATIENT
  Age: 56 Year
  Sex: Male

DRUGS (4)
  1. TACROLIMUS [Suspect]
     Indication: LIVER TRANSPLANT
     Dates: start: 20070401
  2. MYCOPHENOLATE MOFETIL [Suspect]
     Dates: start: 20070401
  3. CORTICOSTEROID NOS (CORTICOSTEROID NOS) [Concomitant]
  4. AZATHIOPRINE [Concomitant]

REACTIONS (7)
  - BONE MARROW FAILURE [None]
  - BRONCHOPULMONARY ASPERGILLOSIS [None]
  - CYTOMEGALOVIRUS TEST POSITIVE [None]
  - EPSTEIN-BARR VIRUS TEST POSITIVE [None]
  - GRAFT VERSUS HOST DISEASE [None]
  - HUMAN HERPES VIRUS 6 SEROLOGY POSITIVE [None]
  - PANCYTOPENIA [None]
